FAERS Safety Report 5397707-9 (Version None)
Quarter: 2007Q3

REPORT INFORMATION
  Report Type: 
  Country: None (occurrence: None)
  Receive Date: 20070723
  Receipt Date: 20070709
  Transmission Date: 20080115
  Serious: Yes (Hospitalization)
  Sender: FDA-Public Use
  Company Number: 158583ISR

PATIENT
  Age: 41 Year
  Sex: Female

DRUGS (3)
  1. VALPROIC ACID [Suspect]
  2. VENLAFAXIINE HCL [Suspect]
  3. OLANZAPINE [Suspect]

REACTIONS (3)
  - DRUG WITHDRAWAL SYNDROME [None]
  - MULTIPLE DRUG OVERDOSE INTENTIONAL [None]
  - SUICIDE ATTEMPT [None]
